FAERS Safety Report 5248360-6 (Version None)
Quarter: 2007Q1

REPORT INFORMATION
  Report Type: 
  Country: None (occurrence: None)
  Receive Date: 20070222
  Receipt Date: 20070213
  Transmission Date: 20070707
  Serious: Yes (Death)
  Sender: FDA-Public Use
  Company Number: TPA2007A00148

PATIENT
  Sex: Male

DRUGS (4)
  1. ACTOS [Suspect]
     Dosage: PER ORAL
     Route: 048
  2. ASPIRIN [Concomitant]
  3. DIGOXIN [Concomitant]
  4. UNKNOWN WATER PILL (CAFFEINE, AMMONIUM CHLORIDE) [Concomitant]

REACTIONS (4)
  - ASTHENIA [None]
  - FATIGUE [None]
  - MYOCARDIAL INFARCTION [None]
  - SWELLING [None]
